FAERS Safety Report 10970892 (Version 1)
Quarter: 2015Q1

REPORT INFORMATION
  Report Type: Spontaneous
  Country: GB (occurrence: GB)
  Receive Date: 20150331
  Receipt Date: 20150331
  Transmission Date: 20150721
  Serious: Yes (Other)
  Sender: FDA-Public Use
  Company Number: GB-BAYER-2015-050095

PATIENT
  Age: 30 Year
  Sex: Female

DRUGS (3)
  1. CANESTEN ORAL + CREAM DUO [Suspect]
     Active Substance: CLOTRIMAZOLE
     Dosage: UNK, ONCE
     Dates: start: 20150316
  2. CANESTEN ORAL + CREAM DUO [Suspect]
     Active Substance: CLOTRIMAZOLE
     Dosage: UNK, ONCE
     Dates: start: 20150316
  3. TRAZODONE [Concomitant]
     Active Substance: TRAZODONE HYDROCHLORIDE
     Dosage: UNK

REACTIONS (4)
  - Pain [None]
  - Blister [None]
  - Erythema [None]
  - Dermatitis bullous [None]

NARRATIVE: CASE EVENT DATE: 20150316
